FAERS Safety Report 10120866 (Version 1)
Quarter: 2014Q2

REPORT INFORMATION
  Report Type: Spontaneous
  Country: FR (occurrence: FR)
  Receive Date: 20140425
  Receipt Date: 20140425
  Transmission Date: 20141212
  Serious: Yes (Death)
  Sender: FDA-Public Use
  Company Number: FR-BRISTOL-MYERS SQUIBB COMPANY-20642575

PATIENT
  Age: 67 Year
  Sex: Female

DRUGS (7)
  1. ORENCIA FOR INJ 250 MG/VIAL [Suspect]
     Indication: RHEUMATOID ARTHRITIS
     Route: 042
     Dates: start: 20080101, end: 20131203
  2. METHOTREXATE [Suspect]
     Indication: RHEUMATOID ARTHRITIS
     Route: 058
  3. SPECIAFOLDINE [Concomitant]
  4. ZELITREX [Concomitant]
  5. INEXIUM [Concomitant]
  6. LAROXYL [Concomitant]
     Dosage: LAROXYL 40 MG/ML
  7. BROMAZEPAM [Concomitant]
     Route: 048

REACTIONS (1)
  - Lung adenocarcinoma metastatic [Fatal]
